FAERS Safety Report 9222643 (Version 1)
Quarter: 2013Q1

REPORT INFORMATION
  Report Type: Spontaneous
  Country: US (occurrence: US)
  Receive Date: 20120914
  Receipt Date: 20120914
  Transmission Date: 20140127
  Serious: Yes (Other)
  Sender: FDA-Public Use
  Company Number: JPI-P-021481

PATIENT
  Age: 64 Year
  Sex: Female

DRUGS (1)
  1. XYREM (500 MG/ML SOLUTION)(SODIUM OXYBATE) [Suspect]
     Indication: NARCOLEPSY
     Dosage: TWO DOSES OF 2.25 GM TAKEN TWICE NIGHTLY/AT BEDTIME.
     Route: 048
     Dates: start: 20110613

REACTIONS (1)
  - Syncope [None]
